FAERS Safety Report 6110175-4 (Version None)
Quarter: 2009Q1

REPORT INFORMATION
  Report Type: 
  Country: None (occurrence: None)
  Receive Date: 20090309
  Receipt Date: 20090309
  Transmission Date: 20090719
  Serious: Yes (Life-Threatening, Other)
  Sender: FDA-Public Use
  Company Number: None

PATIENT
  Sex: Female
  Weight: 70.7 kg

DRUGS (9)
  1. FENTANYL CITRATE [Suspect]
     Indication: PAIN
     Dosage: 100 MCG/HR IV DRIP
     Route: 041
     Dates: start: 20090131, end: 20090204
  2. FENTANYL CITRATE [Suspect]
     Indication: SEDATION
     Dosage: 100 MCG/HR IV DRIP
     Route: 041
     Dates: start: 20090131, end: 20090204
  3. LANSOPRAZOLE [Concomitant]
  4. VENLAFAXINE HCL [Concomitant]
  5. ZOSYN [Concomitant]
  6. DUONEB [Concomitant]
  7. ALBUTEROL [Concomitant]
  8. METHYLPREDNISOLONE 4MG TAB [Concomitant]
  9. ALBUMIN (HUMAN) [Concomitant]

REACTIONS (2)
  - APNOEIC ATTACK [None]
  - BRONCHOSPASM [None]
